FAERS Safety Report 21285316 (Version 1)
Quarter: 2022Q3

REPORT INFORMATION
  Report Type: Other
  Country: GB (occurrence: None)
  Receive Date: 20220902
  Receipt Date: 20220902
  Transmission Date: 20221027
  Serious: Yes (Hospitalization)
  Sender: FDA-Public Use
  Company Number: GB-ROCHE-3171369

PATIENT
  Sex: Female

DRUGS (1)
  1. RISDIPLAM [Suspect]
     Active Substance: RISDIPLAM
     Indication: Product used for unknown indication
     Dosage: FREQUENCY 1
     Route: 065

REACTIONS (1)
  - COVID-19 [Unknown]
